FAERS Safety Report 4585889-8 (Version None)
Quarter: 2005Q1

REPORT INFORMATION
  Report Type: 
  Country: None (occurrence: None)
  Receive Date: 20050125
  Receipt Date: 20040920
  Transmission Date: 20050727
  Serious: No
  Sender: FDA-Public Use
  Company Number: USA040978808

PATIENT
  Age: 52 Year
  Sex: Female

DRUGS (3)
  1. FORTEO [Suspect]
     Dates: start: 20030801
  2. LEVOTHROXINE [Concomitant]
  3. VITAMIN E [Concomitant]

REACTIONS (2)
  - INJECTION SITE ANAESTHESIA [None]
  - PAIN IN EXTREMITY [None]
